FAERS Safety Report 24540047 (Version 1)
Quarter: 2024Q4

REPORT INFORMATION
  Report Type: Report from Study
  Country: IE (occurrence: IE)
  Receive Date: 20241023
  Receipt Date: 20241023
  Transmission Date: 20250114
  Serious: Yes (Other)
  Sender: BIOCON
  Company Number: IE-BIOCON BIOLOGICS LIMITED-BBL2024007786

PATIENT

DRUGS (1)
  1. HULIO [Suspect]
     Active Substance: ADALIMUMAB-FKJP
     Indication: Psoriatic arthropathy
     Dosage: 40 MG, Q2W
     Route: 065

REACTIONS (1)
  - Psoriatic arthropathy [Unknown]
